FAERS Safety Report 4499829-3 (Version None)
Quarter: 2004Q4

REPORT INFORMATION
  Report Type: 
  Country: None (occurrence: None)
  Receive Date: 20041109
  Receipt Date: 20041028
  Transmission Date: 20050328
  Serious: Yes (Hospitalization)
  Sender: FDA-Public Use
  Company Number: 2004084330

PATIENT
  Age: 41 Year
  Sex: Male
  Weight: 79.3795 kg

DRUGS (6)
  1. ACTIFED [Suspect]
     Indication: INFECTION PROPHYLAXIS
     Dosage: ONE TABLET ONCE, ORAL
     Route: 048
     Dates: start: 20041022, end: 20041022
  2. CALCIUM (CALCIUM) [Suspect]
     Indication: MINERAL SUPPLEMENTATION
     Dosage: 1200 MG
     Dates: start: 20040101
  3. PAROXETINE HCL [Concomitant]
  4. MULTIVITAMINS (ASCORBIC ACID, ERGOCALCIFEROL, FOLIC ACID, NICOTINAMIDE [Concomitant]
  5. RISEDRONATE SODIUM (RISEDRONATE SODIUM) [Concomitant]
  6. TESTOSTERONE [Concomitant]

REACTIONS (1)
  - CONVULSION [None]
